FAERS Safety Report 5402622-8 (Version None)
Quarter: 2007Q3

REPORT INFORMATION
  Report Type: 
  Country: None (occurrence: None)
  Receive Date: 20070801
  Receipt Date: 20070306
  Transmission Date: 20080115
  Serious: No
  Sender: FDA-Public Use
  Company Number: A0642079A

PATIENT
  Age: 37 Year
  Sex: Male

DRUGS (3)
  1. IMITREX [Suspect]
     Indication: MIGRAINE
     Dosage: 50MG THREE TIMES PER DAY
     Route: 048
     Dates: end: 20070130
  2. PROVIGIL [Concomitant]
  3. VICODIN [Concomitant]

REACTIONS (1)
  - DRUG INEFFECTIVE [None]
